FAERS Safety Report 17722579 (Version 2)
Quarter: 2020Q2

REPORT INFORMATION
  Report Type: Spontaneous
  Country: DE (occurrence: DE)
  Receive Date: 20200429
  Receipt Date: 20200506
  Transmission Date: 20200714
  Serious: Yes (Other)
  Sender: FDA-Public Use
  Company Number: DE-PFIZER INC-2020167378

PATIENT
  Age: 35 Year
  Sex: Female
  Weight: 62 kg

DRUGS (1)
  1. CYTOTEC [Suspect]
     Active Substance: MISOPROSTOL
     Indication: LABOUR INDUCTION
     Dosage: UNK
     Route: 048

REACTIONS (12)
  - Hypotonia [Recovered/Resolved]
  - Uterine rupture [Recovered/Resolved]
  - Cardiovascular disorder [Recovered/Resolved]
  - Abdominal pain [Recovered/Resolved]
  - Haemorrhage [Recovered/Resolved]
  - Uterine tachysystole [Recovered/Resolved]
  - Blood pressure decreased [Recovered/Resolved]
  - Off label use [Unknown]
  - Product use in unapproved indication [Unknown]
  - Shock [Recovered/Resolved]
  - Dyspnoea [Recovered/Resolved]
  - Fear of death [Recovered/Resolved]

NARRATIVE: CASE EVENT DATE: 20170525
